FAERS Safety Report 24636414 (Version 2)
Quarter: 2024Q4

REPORT INFORMATION
  Report Type: Spontaneous
  Country: CN (occurrence: CN)
  Receive Date: 20241119
  Receipt Date: 20241121
  Transmission Date: 20250115
  Serious: Yes (Hospitalization, Other)
  Sender: SANOFI AVENTIS
  Company Number: CN-MLMSERVICE-20241106-PI251631-00338-1

PATIENT
  Age: 39 Year
  Sex: Female
  Weight: 70 kg

DRUGS (4)
  1. ZOLPIDEM TARTRATE [Suspect]
     Active Substance: ZOLPIDEM TARTRATE
     Indication: Insomnia
     Dosage: 10 MG, QD,ONCE PER NIGHT/AT BEDTIME
     Dates: start: 2015, end: 2017
  2. ZOLPIDEM TARTRATE [Suspect]
     Active Substance: ZOLPIDEM TARTRATE
     Dosage: 20 MG, QD,ONCE PER NIGHT
     Dates: start: 2017, end: 2021
  3. ZOLPIDEM TARTRATE [Suspect]
     Active Substance: ZOLPIDEM TARTRATE
     Dosage: 40 MG, QD,PURPOSEFULLY RAISED THE DOSAGE TO 40 MG PER NIGHT
     Dates: start: 2021, end: 2023
  4. ZOLPIDEM TARTRATE [Suspect]
     Active Substance: ZOLPIDEM TARTRATE
     Dosage: 280  MG, QD (DIVIDED INTO 3 DOSES)
     Dates: start: 2023, end: 2024

REACTIONS (22)
  - Drug use disorder [Recovered/Resolved]
  - Drug dependence [Recovered/Resolved]
  - Drug abuse [Recovered/Resolved]
  - Disturbance in attention [Recovered/Resolved]
  - Memory impairment [Recovered/Resolved]
  - Increased appetite [Recovered/Resolved]
  - Somnolence [Recovered/Resolved]
  - Anxiety disorder [Recovered/Resolved]
  - Euphoric mood [Recovered/Resolved]
  - Dysphoria [Recovered/Resolved]
  - Anger [Recovered/Resolved]
  - Impaired work ability [Recovered/Resolved]
  - Anxiety [Recovered/Resolved]
  - Anticipatory anxiety [Recovered/Resolved]
  - Emotional disorder [Recovered/Resolved]
  - Emotional distress [Recovered/Resolved]
  - Depression [Recovered/Resolved]
  - Blood glucose fluctuation [Recovered/Resolved]
  - Arrhythmia [Unknown]
  - Sinus bradycardia [Unknown]
  - Pneumonitis [Unknown]
  - Hepatic steatosis [Unknown]
